FAERS Safety Report 14454246 (Version 1)
Quarter: 2018Q1

REPORT INFORMATION
  Report Type: Spontaneous
  Country: CA (occurrence: CA)
  Receive Date: 20180129
  Receipt Date: 20180129
  Transmission Date: 20180509
  Serious: Yes (Other)
  Sender: FDA-Public Use
  Company Number: CA-PFIZER INC-2018030367

PATIENT
  Age: 80 Year
  Sex: Female

DRUGS (3)
  1. PHENYTOIN. [Suspect]
     Active Substance: PHENYTOIN
     Dosage: 300 MG, DAILY AT BEDTIME (3X100MG)
  2. CIPROFLOXACIN HCL [Interacting]
     Active Substance: CIPROFLOXACIN HYDROCHLORIDE
     Dosage: 500 MG, 2X/DAY
     Dates: start: 2017, end: 2017
  3. METRONIDAZOLE. [Interacting]
     Active Substance: METRONIDAZOLE
     Dosage: 500 MG, 2X/DAY
     Dates: start: 2017, end: 2017

REACTIONS (9)
  - Insomnia [Unknown]
  - Osteoporosis [Unknown]
  - Seizure [Recovered/Resolved]
  - Drug interaction [Unknown]
  - Dizziness [Unknown]
  - Pain in extremity [Unknown]
  - Peripheral swelling [Unknown]
  - Infection [Unknown]
  - Constipation [Unknown]

NARRATIVE: CASE EVENT DATE: 201711
